FAERS Safety Report 8540338-X (Version None)
Quarter: 2012Q3

REPORT INFORMATION
  Report Type: 
  Country: None (occurrence: None)
  Receive Date: 20120726
  Receipt Date: 20120711
  Transmission Date: 20120928
  Serious: No
  Sender: FDA-Public Use
  Company Number: US-009507513-1207USA003494

PATIENT

DRUGS (2)
  1. DULERA [Suspect]
     Indication: ASTHMA
     Dosage: UNK, UNKNOWN
  2. ADVAIR DISKUS 100/50 [Suspect]
     Dosage: UNK, UNKNOWN

REACTIONS (1)
  - LUNG DISORDER [None]
